FAERS Safety Report 6491621-3 (Version None)
Quarter: 2009Q4

REPORT INFORMATION
  Report Type: 
  Country: None (occurrence: None)
  Receive Date: 20091211
  Receipt Date: 20091204
  Transmission Date: 20100525
  Serious: Yes (Other)
  Sender: FDA-Public Use
  Company Number: DE-B.I. PHARMACEUTICALS,INC./RIDGEFIELD-2009-DE-07553GD

PATIENT
  Age: 66 Year
  Sex: Male

DRUGS (4)
  1. PRAMIPEXOLE DIHYDROCHLORIDE [Suspect]
     Indication: PARKINSON'S DISEASE
     Dosage: 2.8 MG
  2. AMANTADINE [Suspect]
     Indication: PARKINSON'S DISEASE
     Dosage: 250 MG
  3. SELEGILINE HCL [Suspect]
     Indication: PARKINSON'S DISEASE
     Dosage: 5 MG
  4. LEVODOPA [Suspect]
     Indication: PARKINSON'S DISEASE
     Dosage: 600 MG

REACTIONS (1)
  - CAMPTOCORMIA [None]
